FAERS Safety Report 21776435 (Version 1)
Quarter: 2022Q4

REPORT INFORMATION
  Report Type: Spontaneous
  Country: LB (occurrence: LB)
  Receive Date: 20221226
  Receipt Date: 20221226
  Transmission Date: 20230112
  Serious: Yes (Death, Other)
  Sender: FDA-Public Use
  Company Number: LB-NOVOPROD-962702

PATIENT
  Age: 52 Year
  Sex: Male
  Weight: 120 kg

DRUGS (2)
  1. NOVOSEVEN [Suspect]
     Active Substance: COAGULATION FACTOR VIIA RECOMBINANT HUMAN
     Indication: Disseminated intravascular coagulation
  2. NOVOSEVEN [Suspect]
     Active Substance: COAGULATION FACTOR VIIA RECOMBINANT HUMAN
     Indication: Haemorrhage
     Dosage: 0.5

REACTIONS (3)
  - Cardiac arrest [Fatal]
  - Arterial haemorrhage [Fatal]
  - Off label use [Recovered/Resolved]
